FAERS Safety Report 6143906-8 (Version None)
Quarter: 2009Q2

REPORT INFORMATION
  Report Type: 
  Country: None (occurrence: None)
  Receive Date: 20090406
  Receipt Date: 20090327
  Transmission Date: 20091009
  Serious: Yes (Other)
  Sender: FDA-Public Use
  Company Number: PHEH2009US03131

PATIENT
  Sex: Female

DRUGS (4)
  1. RECLAST [Suspect]
     Indication: OSTEITIS DEFORMANS
     Dosage: 5 MG, UNK
  2. RECLAST [Suspect]
     Dosage: 5 MG, UNK
     Dates: start: 20080401
  3. RECLAST [Suspect]
     Dosage: 5 MG, UNK
     Dates: start: 20081001
  4. AREDIA [Concomitant]

REACTIONS (6)
  - CANDIDIASIS [None]
  - DRUG INEFFECTIVE [None]
  - HEADACHE [None]
  - INFLUENZA LIKE ILLNESS [None]
  - PAIN IN EXTREMITY [None]
  - PAIN IN JAW [None]
